FAERS Safety Report 7974494-9 (Version None)
Quarter: 2011Q4

REPORT INFORMATION
  Report Type: 
  Country: None (occurrence: None)
  Receive Date: 20111213
  Receipt Date: 20111206
  Transmission Date: 20120403
  Serious: Yes (Other)
  Sender: FDA-Public Use
  Company Number: CHPA2011US017553

PATIENT
  Sex: Male

DRUGS (2)
  1. DRUG THERAPY NOS [Concomitant]
     Indication: BACK PAIN
     Route: 048
  2. BENEFIBER W/ WHEAT DEXTRIN [Suspect]
     Indication: FOOD AVERSION
     Dosage: 12 TSP, 3-4 TIMES PER DAY
     Route: 048
     Dates: start: 20111101

REACTIONS (5)
  - OVERDOSE [None]
  - DIVERTICULITIS [None]
  - FEELING ABNORMAL [None]
  - PAIN [None]
  - OFF LABEL USE [None]
